FAERS Safety Report 16563431 (Version 3)
Quarter: 2019Q4

REPORT INFORMATION
  Report Type: Report from Study
  Country: GB (occurrence: GB)
  Receive Date: 20190712
  Receipt Date: 20191031
  Transmission Date: 20200122
  Serious: Yes (Hospitalization)
  Sender: FDA-Public Use
  Company Number: GB-ROCHE-2354150

PATIENT
  Sex: Female

DRUGS (5)
  1. DICLOFENAC [Concomitant]
     Active Substance: DICLOFENAC
  2. FORSTEO [Concomitant]
     Active Substance: TERIPARATIDE
  3. ROACTEMRA [Suspect]
     Active Substance: TOCILIZUMAB
     Indication: RHEUMATOID ARTHRITIS
     Route: 058
     Dates: start: 20190607
  4. ROACTEMRA [Suspect]
     Active Substance: TOCILIZUMAB
     Route: 058
     Dates: start: 20190628
  5. ADCAL [CALCIUM CARBONATE] [Concomitant]

REACTIONS (6)
  - Pain [Unknown]
  - Arthritis [Unknown]
  - Musculoskeletal pain [Unknown]
  - Eye disorder [Unknown]
  - Arthralgia [Unknown]
  - Pain in extremity [Unknown]
